FAERS Safety Report 17059036 (Version 2)
Quarter: 2020Q3

REPORT INFORMATION
  Report Type: Report from Study
  Country: JP (occurrence: JP)
  Receive Date: 20191121
  Receipt Date: 20200703
  Transmission Date: 20201102
  Serious: Yes (Hospitalization)
  Sender: FDA-Public Use
  Company Number: JP-VIFOR (INTERNATIONAL) INC.-VIT-2019-14121

PATIENT
  Age: 60 Year
  Sex: Male
  Weight: 81.6 kg

DRUGS (14)
  1. CALTAN [Concomitant]
     Active Substance: CALCIUM CARBONATE
     Indication: HYPERPHOSPHATAEMIA
     Route: 048
  2. DIGOXIN. [Concomitant]
     Active Substance: DIGOXIN
  3. LANSOPRAZOLE OD [Concomitant]
     Active Substance: LANSOPRAZOLE
     Route: 048
  4. NESP [Concomitant]
     Active Substance: DARBEPOETIN ALFA
     Dates: start: 20180507
  5. VELPHORO [Suspect]
     Active Substance: SUCROFERRIC OXYHYDROXIDE
     Indication: HYPERPHOSPHATAEMIA
     Route: 048
     Dates: start: 20161214, end: 20180919
  6. VELPHORO [Suspect]
     Active Substance: SUCROFERRIC OXYHYDROXIDE
     Indication: CHRONIC KIDNEY DISEASE
  7. FESIN [Concomitant]
     Dates: start: 20170501
  8. PARSABIV [Concomitant]
     Active Substance: ETELCALCETIDE HYDROCHLORIDE
     Route: 042
     Dates: start: 20180124
  9. NEUFAN [Concomitant]
     Active Substance: ALLOPURINOL
     Indication: HYPERURICAEMIA
     Route: 048
  10. REGPARA [Concomitant]
     Active Substance: CINACALCET HYDROCHLORIDE
     Route: 048
  11. REBAMIPIDE [Concomitant]
     Active Substance: REBAMIPIDE
     Indication: PROPHYLAXIS
     Route: 048
     Dates: start: 20170509, end: 20170515
  12. REBAMIPIDE [Concomitant]
     Active Substance: REBAMIPIDE
     Route: 048
     Dates: start: 20170516, end: 20170530
  13. REBAMIPIDE [Concomitant]
     Active Substance: REBAMIPIDE
     Route: 048
     Dates: start: 20170621
  14. FOSRENOL [Concomitant]
     Active Substance: LANTHANUM CARBONATE
     Indication: HYPERPHOSPHATAEMIA
     Route: 048
     Dates: start: 20181024

REACTIONS (12)
  - Haematocrit increased [Recovered/Resolved]
  - Hyperparathyroidism secondary [Recovering/Resolving]
  - Hyperparathyroidism secondary [Not Recovered/Not Resolved]
  - Shunt stenosis [Not Recovered/Not Resolved]
  - Shunt stenosis [Not Recovered/Not Resolved]
  - Haemoglobin increased [Recovered/Resolved]
  - Shunt stenosis [Not Recovered/Not Resolved]
  - Dialysis hypotension [Not Recovered/Not Resolved]
  - Anal fistula [Recovering/Resolving]
  - Sciatica [Unknown]
  - Shunt stenosis [Not Recovered/Not Resolved]
  - Spinal stenosis [Not Recovered/Not Resolved]

NARRATIVE: CASE EVENT DATE: 20170111
